FAERS Safety Report 9568895 (Version 1)
Quarter: 2013Q3

REPORT INFORMATION
  Report Type: Spontaneous
  Country: US (occurrence: US)
  Receive Date: 20130930
  Receipt Date: 20130930
  Transmission Date: 20140515
  Serious: No
  Sender: FDA-Public Use
  Company Number: US-AMGEN-USASP2013060517

PATIENT
  Age: 59 Year
  Sex: Male
  Weight: 90.7 kg

DRUGS (15)
  1. ENBREL [Suspect]
     Indication: PRODUCT USED FOR UNKNOWN INDICATION
     Dosage: 50 MG, QWK
     Route: 058
  2. HUMALOG [Concomitant]
     Dosage: 100/ML
  3. PREDNISONE [Concomitant]
     Dosage: 2.5 MG, UNK
  4. HUMIRA [Concomitant]
     Dosage: 40 MG, UNK
  5. LANTUS [Concomitant]
     Dosage: 100/ML
  6. TRAMADOL HCL [Concomitant]
     Dosage: 50 MG, UNK
  7. ATENOLOL [Concomitant]
     Dosage: 25 MG, UNK
  8. LOVASTATIN [Concomitant]
     Dosage: 10 MG, UNK
  9. LISINOPRIL                         /00894002/ [Concomitant]
     Dosage: 10 MG, UNK
  10. LEVOTHYROXIN [Concomitant]
     Dosage: 75 MUG, UNK
  11. OXYCODONE                          /00045603/ [Concomitant]
     Dosage: 10 MG, UNK
  12. COQ 10 [Concomitant]
     Dosage: UNK
  13. VITAMIN D                          /00107901/ [Concomitant]
     Dosage: 1000 UNIT, UNK
  14. ASPIRIN [Concomitant]
     Dosage: 81 MG, UNK
  15. FOLIC ACID [Concomitant]
     Dosage: UNK

REACTIONS (1)
  - Disease progression [Unknown]
